FAERS Safety Report 8963728 (Version 1)
Quarter: 2012Q4

REPORT INFORMATION
  Report Type: 
  Country: FR (occurrence: FR)
  Receive Date: 20121213
  Receipt Date: 20121213
  Transmission Date: 20130627
  Serious: Yes (Hospitalization)
  Sender: FDA-Public Use
  Company Number: FR-BRISTOL-MYERS SQUIBB COMPANY-17184383

PATIENT
  Age: 83 Year
  Sex: Male

DRUGS (4)
  1. COUMADINE [Suspect]
     Route: 048
  2. KARDEGIC [Suspect]
     Route: 048
     Dates: end: 20120903
  3. LOVENOX [Suspect]
     Route: 058
     Dates: start: 20120712, end: 20120815
  4. CALCIPARINE [Suspect]
     Route: 058

REACTIONS (3)
  - Fall [Unknown]
  - Wound [Unknown]
  - Subdural haematoma [Recovered/Resolved]
